FAERS Safety Report 24421377 (Version 1)
Quarter: 2024Q4

REPORT INFORMATION
  Report Type: Spontaneous
  Country: CN (occurrence: CN)
  Receive Date: 20241010
  Receipt Date: 20241010
  Transmission Date: 20250115
  Serious: Yes (Hospitalization)
  Sender: ROCHE
  Company Number: CN-ROCHE-10000101863

PATIENT
  Age: 58 Year
  Sex: Male
  Weight: 65 kg

DRUGS (2)
  1. OBINUTUZUMAB [Suspect]
     Active Substance: OBINUTUZUMAB
     Indication: Extranodal marginal zone B-cell lymphoma (MALT type)
     Route: 042
     Dates: start: 20240903, end: 20240903
  2. ORELABRUTINIB [Suspect]
     Active Substance: ORELABRUTINIB
     Indication: Extranodal marginal zone B-cell lymphoma (MALT type)
     Route: 048
     Dates: start: 20240903, end: 20240927

REACTIONS (2)
  - Myelosuppression [Unknown]
  - Off label use [Unknown]

NARRATIVE: CASE EVENT DATE: 20240928
